FAERS Safety Report 6804239-7 (Version None)
Quarter: 2010Q2

REPORT INFORMATION
  Report Type: 
  Country: None (occurrence: None)
  Receive Date: 20100628
  Receipt Date: 20070212
  Transmission Date: 20101027
  Serious: Yes (Other)
  Sender: FDA-Public Use
  Company Number: US-PFIZER INC-2007012522

PATIENT
  Sex: Female
  Weight: 81.6 kg

DRUGS (8)
  1. CADUET [Suspect]
     Indication: HYPERTENSION
     Dosage: 5/10MG; 5/10MG
     Dates: start: 20070201
  2. CADUET [Suspect]
     Indication: BLOOD CHOLESTEROL INCREASED
  3. ATENOLOL [Concomitant]
  4. BENICAR [Concomitant]
  5. SPIRONOLACTONE [Concomitant]
  6. LASIX [Concomitant]
  7. SYNTHROID [Concomitant]
  8. ACETYLSALICYLIC ACID [Concomitant]

REACTIONS (1)
  - BLOOD GLUCOSE INCREASED [None]
